FAERS Safety Report 16873103 (Version 1)
Quarter: 2019Q4

REPORT INFORMATION
  Report Type: Spontaneous
  Country: JP (occurrence: JP)
  Receive Date: 20191001
  Receipt Date: 20191001
  Transmission Date: 20200122
  Serious: Yes (Death)
  Sender: FDA-Public Use
  Company Number: JP-CELGENEUS-JPN-20190909952

PATIENT
  Age: 32 Year
  Sex: Male

DRUGS (2)
  1. VIDAZA [Suspect]
     Active Substance: AZACITIDINE
     Indication: OFF LABEL USE
  2. VIDAZA [Suspect]
     Active Substance: AZACITIDINE
     Indication: CONGENITAL APLASTIC ANAEMIA
     Route: 065
     Dates: start: 20190617

REACTIONS (1)
  - Death [Fatal]

NARRATIVE: CASE EVENT DATE: 2019
